FAERS Safety Report 6821382-7 (Version None)
Quarter: 2010Q3

REPORT INFORMATION
  Report Type: 
  Country: None (occurrence: None)
  Receive Date: 20100707
  Receipt Date: 20081216
  Transmission Date: 20110219
  Serious: No
  Sender: FDA-Public Use
  Company Number: US-PFIZER INC-2008066469

PATIENT
  Sex: Female
  Weight: 69.545 kg

DRUGS (4)
  1. ZOLOFT [Suspect]
     Indication: DEPRESSION
     Dates: start: 20080722
  2. ALBUTEROL [Concomitant]
  3. FLOVENT [Concomitant]
  4. TRAZODONE HYDROCHLORIDE [Concomitant]

REACTIONS (2)
  - ASTHENIA [None]
  - DEPRESSION [None]
